FAERS Safety Report 7435586-6 (Version None)
Quarter: 2011Q2

REPORT INFORMATION
  Report Type: 
  Country: None (occurrence: None)
  Receive Date: 20110425
  Receipt Date: 20110411
  Transmission Date: 20111010
  Serious: Yes (Other)
  Sender: FDA-Public Use
  Company Number: AU-JNJFOC-20110405817

PATIENT
  Age: 2 Year
  Sex: Female

DRUGS (1)
  1. COMBANTRIN-1 CHOCOLATE SQUARES [Suspect]
     Indication: PRODUCT USED FOR UNKNOWN INDICATION
     Route: 048

REACTIONS (1)
  - VOMITING [None]
